FAERS Safety Report 21258255 (Version 1)
Quarter: 2022Q3

REPORT INFORMATION
  Report Type: Spontaneous
  Country: JP (occurrence: JP)
  Receive Date: 20220826
  Receipt Date: 20220826
  Transmission Date: 20221026
  Serious: Yes (Hospitalization, Other)
  Sender: FDA-Public Use
  Company Number: JP-PFIZER INC-202201088765

PATIENT
  Age: 75 Year
  Sex: Female
  Weight: 37.6 kg

DRUGS (3)
  1. RHEUMATREX [Suspect]
     Active Substance: METHOTREXATE SODIUM
     Indication: Rheumatoid arthritis
     Dosage: 2 MG ON FRIDAY AND 8 MG ON SATURDAY
     Route: 048
     Dates: end: 20220702
  2. FOLIC ACID [Concomitant]
     Active Substance: FOLIC ACID
     Dosage: 5 MG, AFTER BREAKFAST, WEEKLY (EVERY MONDAY)
     Route: 048
     Dates: end: 20220704
  3. ATENOLOL [Concomitant]
     Active Substance: ATENOLOL
     Dosage: 50 MG, 1X/DAY, BEFORE BREAKFAST

REACTIONS (3)
  - Pneumonia [Unknown]
  - Hyponatraemia [Unknown]
  - Hypokalaemia [Unknown]
